FAERS Safety Report 9123788 (Version 2)
Quarter: 2013Q1

REPORT INFORMATION
  Report Type: Spontaneous
  Country: FR (occurrence: FR)
  Receive Date: 20130116
  Receipt Date: 20130321
  Transmission Date: 20140127
  Serious: Yes (Hospitalization)
  Sender: FDA-Public Use
  Company Number: FR-PFIZER INC-2013014297

PATIENT
  Age: 86 Year
  Sex: Female

DRUGS (10)
  1. IMETH [Suspect]
     Indication: RHEUMATOID ARTHRITIS
     Dosage: UNK
     Route: 048
     Dates: end: 20121115
  2. TRIFLUCAN [Suspect]
     Indication: ORAL INFECTION
     Dosage: UNK
     Route: 048
     Dates: start: 20121106, end: 20121113
  3. RODOGYL [Suspect]
     Indication: ORAL INFECTION
     Dosage: UNK
     Route: 048
     Dates: start: 20121106, end: 20121113
  4. LASILIX [Concomitant]
     Dosage: UNK
     Route: 065
  5. PREDNISOLONE [Concomitant]
     Dosage: UNK
     Route: 065
  6. SINTROM [Concomitant]
     Dosage: UNK
     Route: 065
  7. DAFLON [Concomitant]
     Dosage: (STRENGTH: 500 MG)
     Route: 065
  8. PRAVASTATIN [Concomitant]
     Dosage: UNK
     Route: 065
  9. UVEDOSE [Concomitant]
     Dosage: UNK
  10. XANAX [Concomitant]
     Dosage: (STRENGTH: 0.25 MG)
     Route: 065

REACTIONS (6)
  - Oral infection [Unknown]
  - Pancytopenia [Recovering/Resolving]
  - Normochromic normocytic anaemia [Recovering/Resolving]
  - Neutropenia [Recovered/Resolved]
  - Thrombocytopenia [Recovered/Resolved]
  - Leukopenia [Recovered/Resolved]
